FAERS Safety Report 6611051-0 (Version None)
Quarter: 2010Q1

REPORT INFORMATION
  Report Type: 
  Country: None (occurrence: None)
  Receive Date: 20100303
  Receipt Date: 20100217
  Transmission Date: 20100710
  Serious: Yes (Other)
  Sender: FDA-Public Use
  Company Number: GB-RANBAXY-2010RR-31492

PATIENT
  Sex: Male

DRUGS (1)
  1. RANITIDINE [Suspect]
     Route: 048

REACTIONS (4)
  - CIRCULATORY COLLAPSE [None]
  - PYREXIA [None]
  - TACHYCARDIA [None]
  - VENTRICULAR EXTRASYSTOLES [None]
